FAERS Safety Report 5582954-3 (Version None)
Quarter: 2007Q4

REPORT INFORMATION
  Report Type: 
  Country: None (occurrence: None)
  Receive Date: 20071231
  Receipt Date: 20071217
  Transmission Date: 20080405
  Serious: Yes (Other)
  Sender: FDA-Public Use
  Company Number: 02100-JPN-07-0795

PATIENT
  Age: 62 Year
  Sex: Male

DRUGS (6)
  1. CILOSTAZOL [Suspect]
     Indication: ARTERIOSCLEROSIS
     Dosage: 200 MG ORAL
     Route: 048
     Dates: start: 20070919, end: 20071002
  2. ALLOPURINOL [Suspect]
     Indication: HYPERURICAEMIA
     Dosage: 100 MG ORAL
     Route: 048
     Dates: start: 20070925, end: 20070926
  3. PIOGLITAZONE HCL [Suspect]
     Indication: DIABETES MELLITUS
     Dosage: 7.5 MG ORAL
     Route: 048
     Dates: start: 20070925, end: 20071002
  4. TELMISARTAN [Concomitant]
  5. AMLODIPINE BESYLATE [Concomitant]
  6. ASPIRIN [Concomitant]

REACTIONS (2)
  - RENAL IMPAIRMENT [None]
  - WHITE BLOOD CELL COUNT DECREASED [None]
